FAERS Safety Report 5214147-3 (Version None)
Quarter: 2007Q1

REPORT INFORMATION
  Report Type: 
  Country: None (occurrence: None)
  Receive Date: 20070122
  Receipt Date: 20070115
  Transmission Date: 20070707
  Serious: Yes (Hospitalization)
  Sender: FDA-Public Use
  Company Number: PHRM2007FR00520

PATIENT
  Age: 71 Year
  Sex: Male

DRUGS (5)
  1. NEORAL [Suspect]
     Indication: RENAL TRANSPLANT
     Dosage: 175 MG PER DAY
     Route: 048
  2. CORTANCYL [Suspect]
     Indication: RENAL TRANSPLANT
     Dosage: 10 MG PER DAY
     Route: 048
  3. VASTAREL ^SERVIER^ [Concomitant]
     Indication: ANGINA PECTORIS
     Dosage: 35 MG, BID
     Route: 048
  4. CARDENSIEL [Concomitant]
     Indication: ESSENTIAL HYPERTENSION
     Dosage: 5 MG PER DAY
     Route: 048
  5. RENITEC [Concomitant]
     Indication: ESSENTIAL HYPERTENSION
     Dosage: 10 MG PER DAY
     Route: 048

REACTIONS (15)
  - BLOOD CREATININE INCREASED [None]
  - BLOOD UREA INCREASED [None]
  - C-REACTIVE PROTEIN INCREASED [None]
  - CONFUSIONAL STATE [None]
  - HYPERTHERMIA [None]
  - INFLAMMATION [None]
  - KLEBSIELLA INFECTION [None]
  - NEUTROPHIL COUNT INCREASED [None]
  - POLLAKIURIA [None]
  - PSYCHOMOTOR RETARDATION [None]
  - RED BLOOD CELLS URINE POSITIVE [None]
  - RENAL FAILURE [None]
  - URINARY TRACT INFECTION [None]
  - WHITE BLOOD CELL COUNT INCREASED [None]
  - WHITE BLOOD CELLS URINE POSITIVE [None]
